FAERS Safety Report 26109802 (Version 1)
Quarter: 2025Q4

REPORT INFORMATION
  Report Type: Spontaneous
  Country: US (occurrence: US)
  Receive Date: 20251201
  Receipt Date: 20251201
  Transmission Date: 20260118
  Serious: No
  Sender: CHIMERIX
  Company Number: US-CHIMERIX-US-CHI-25-000409

PATIENT
  Age: 35 Year
  Sex: Female

DRUGS (1)
  1. MODEYSO [Suspect]
     Active Substance: DORDAVIPRONE
     Indication: Brain stem glioma
     Dosage: UNK, UNK
     Route: 065

REACTIONS (2)
  - Chest pain [Unknown]
  - Burning sensation [Unknown]
